FAERS Safety Report 18792272 (Version 1)
Quarter: 2021Q1

REPORT INFORMATION
  Report Type: Spontaneous
  Country: PL (occurrence: PL)
  Receive Date: 20210127
  Receipt Date: 20210127
  Transmission Date: 20210419
  Serious: Yes (Hospitalization, Disabling, Other)
  Sender: FDA-Public Use
  Company Number: PL-AUROBINDO-AUR-APL-2021-002649

PATIENT
  Age: 43 Year
  Sex: Male

DRUGS (2)
  1. LEVOFLOXACIN. [Suspect]
     Active Substance: LEVOFLOXACIN
     Dosage: 500 MILLIGRAM, DAILY (FOR NEXT 21 DAYS)
     Route: 048
  2. LEVOFLOXACIN. [Suspect]
     Active Substance: LEVOFLOXACIN
     Indication: UROLOGICAL EXAMINATION
     Dosage: 1500 MILLIGRAM, DAILY
     Route: 048
     Dates: start: 2015

REACTIONS (19)
  - Speech disorder [Recovering/Resolving]
  - Amnesia [Recovering/Resolving]
  - Tendon disorder [Recovering/Resolving]
  - Depression [Recovering/Resolving]
  - Gastrointestinal disorder [Recovering/Resolving]
  - Feeling abnormal [Recovering/Resolving]
  - Confusional state [Recovering/Resolving]
  - Joint injury [Recovering/Resolving]
  - Disability [Recovering/Resolving]
  - Blindness [Recovering/Resolving]
  - Muscle injury [Recovering/Resolving]
  - Anxiety [Recovering/Resolving]
  - Neck pain [Recovering/Resolving]
  - Pain in extremity [Recovering/Resolving]
  - Muscular weakness [Recovering/Resolving]
  - Urinary tract disorder [Recovering/Resolving]
  - Skin disorder [Recovering/Resolving]
  - Paraesthesia [Recovering/Resolving]
  - Fatigue [Recovering/Resolving]
